FAERS Safety Report 11147862 (Version 1)
Quarter: 2015Q2

REPORT INFORMATION
  Report Type: Spontaneous
  Country: CA (occurrence: CA)
  Receive Date: 20150529
  Receipt Date: 20150529
  Transmission Date: 20150821
  Serious: Yes (Hospitalization)
  Sender: FDA-Public Use
  Company Number: CA-TEVA-565975ACC

PATIENT
  Age: 76 Year
  Sex: Male
  Weight: 91 kg

DRUGS (13)
  1. LOVASTATIN. [Concomitant]
     Active Substance: LOVASTATIN
     Dosage: UNKNOWN FORM STRENGTH
     Route: 065
  2. VITAMIN D [Concomitant]
     Active Substance: CHOLECALCIFEROL
     Dosage: UNKNOWN FORM STRENGTH
     Route: 065
  3. GLUCOSAMINE + CHONDROITIN + MSM [Concomitant]
     Dosage: UNKNOWN FORM STRENGTH
     Route: 065
  4. METFORMIN [Concomitant]
     Active Substance: METFORMIN HYDROCHLORIDE
     Dosage: UNKNOWN FORM STRENGTH
     Route: 065
  5. QUININE [Concomitant]
     Active Substance: QUININE
     Dosage: UNKNOWN FORM STRENGTH
     Route: 065
  6. VITAMIN B12 [Concomitant]
     Active Substance: CYANOCOBALAMIN
     Dosage: UNKNOWN FORM STRENGTH
     Route: 065
  7. NOVO-PIOGLITAZONE [Suspect]
     Active Substance: PIOGLITAZONE
     Indication: DIABETES MELLITUS
     Dosage: 45 MILLIGRAM DAILY;
     Route: 065
  8. ENTERIC COATED ASA [Concomitant]
     Active Substance: ASPIRIN
     Dosage: UNKNOWN FORM STRENGTH
     Route: 065
  9. LUTEIN [Concomitant]
     Active Substance: LUTEIN
     Dosage: UNKNOWN FORM STRENGTH
     Route: 065
  10. DOMPERIDONE [Concomitant]
     Active Substance: DOMPERIDONE
     Dosage: UNKNOWN FORM STRENGTH
     Route: 065
  11. GLYBURIDE. [Concomitant]
     Active Substance: GLYBURIDE
     Dosage: UNKNOWN FORM STRENGTH
     Route: 065
  12. MULTIVITAMINE(S) [Concomitant]
     Dosage: UNKNOWN FORM STRENGTH
     Route: 065
  13. IRBESARTAN. [Concomitant]
     Active Substance: IRBESARTAN
     Dosage: UNKNOWN FORM STRENGTH
     Route: 065

REACTIONS (2)
  - Bladder neoplasm [Unknown]
  - Transurethral bladder resection [Unknown]
